FAERS Safety Report 4462607-5 (Version None)
Quarter: 2004Q3

REPORT INFORMATION
  Report Type: 
  Country: None (occurrence: None)
  Receive Date: 20040928
  Receipt Date: 20040910
  Transmission Date: 20050211
  Serious: Yes (Other)
  Sender: FDA-Public Use
  Company Number: 2004-09-0073

PATIENT
  Age: 24 Year
  Sex: Female
  Weight: 67 kg

DRUGS (1)
  1. LORATADINE/ BETAMETHASONE TABLETS [Suspect]
     Indication: RHINITIS ALLERGIC
     Dosage: 1 TAB/DAY ORAL
     Route: 048
     Dates: start: 20000101, end: 20040501

REACTIONS (1)
  - CUSHING'S SYNDROME [None]
